FAERS Safety Report 21646815 (Version 1)
Quarter: 2022Q4

REPORT INFORMATION
  Report Type: Spontaneous
  Country: SE (occurrence: SE)
  Receive Date: 20221127
  Receipt Date: 20221127
  Transmission Date: 20230112
  Serious: Yes (Hospitalization)
  Sender: FDA-Public Use
  Company Number: None

PATIENT
  Age: 85 Year
  Sex: Female

DRUGS (9)
  1. ATORVASTATIN [Suspect]
     Active Substance: ATORVASTATIN
     Indication: Hyperlipidaemia
     Route: 065
  2. SODIUM PICOSULFATE [Concomitant]
     Active Substance: SODIUM PICOSULFATE
     Indication: Product used for unknown indication
     Dosage: 20-40 DROPS IF NECESSARY IN THE EVENING 1-2 TIMES PER WEEK. CILAXORAL 7.5 MG/ML.
     Dates: start: 20191106
  3. LEVOTHYROXINE SODIUM [Concomitant]
     Active Substance: LEVOTHYROXINE SODIUM
     Indication: Product used for unknown indication
     Dosage: UNIT DOSE: 75 MG , FREQUENCY TIME : 1 DAY
     Dates: start: 20200325
  4. FELODIPINE [Concomitant]
     Active Substance: FELODIPINE
     Indication: Product used for unknown indication
     Dosage: UNIT DOSE: 5 MG , FREQUENCY TIME : 1 DAY
     Dates: start: 20191107
  5. LACTULOSE [Concomitant]
     Active Substance: LACTULOSE
     Indication: Product used for unknown indication
     Dosage: 10-20 ML IF NECESSARY ORALLY.
     Route: 048
     Dates: start: 20191003
  6. Betolvex [Concomitant]
     Indication: Product used for unknown indication
     Dosage: UNIT DOSE: 1 MG, FREQUENCY TIME : 1 DAY
     Dates: start: 20201112
  7. DOCUSATE SODIUM [Concomitant]
     Active Substance: DOCUSATE SODIUM
     Indication: Product used for unknown indication
     Dosage: 120 ML IF NECESSARY AT MOST TWICE DAILY RECTALLY. KLYX 1MG/ML+250MG/ML RECTAL SOLUTION
     Route: 054
     Dates: start: 20190211
  8. ZOLPIDEM [Concomitant]
     Active Substance: ZOLPIDEM TARTRATE
     Indication: Product used for unknown indication
     Dosage: UNIT DOSE: 5 MG , FREQUENCY TIME : 1 DAY
     Dates: start: 20191003
  9. ASPIRIN [Concomitant]
     Active Substance: ASPIRIN
     Indication: Product used for unknown indication
     Dosage: UNIT DOSE: 75 MG , FREQUENCY TIME : 1 DAY
     Dates: start: 20220611

REACTIONS (1)
  - Liver injury [Unknown]
